FAERS Safety Report 15707897 (Version 1)
Quarter: 2018Q4

REPORT INFORMATION
  Report Type: Other
  Country: ES (occurrence: ES)
  Receive Date: 20181211
  Receipt Date: 20181211
  Transmission Date: 20190205
  Serious: Yes (Hospitalization, Other)
  Sender: FDA-Public Use
  Company Number: ES-APOTEX-2018AP026468

PATIENT
  Age: 80 Year
  Sex: Female

DRUGS (5)
  1. CEFUROXIME. [Suspect]
     Active Substance: CEFUROXIME
     Dosage: 500MG, 2 VECES AL D?A
     Route: 042
     Dates: start: 20170629, end: 20170705
  2. PREDNISONA [Concomitant]
     Active Substance: PREDNISONE
     Indication: SOLID ORGAN TRANSPLANT
     Dosage: 20 MG, 1 VEZ AL D?A
     Route: 048
     Dates: start: 20170609
  3. CEFUROXIME. [Suspect]
     Active Substance: CEFUROXIME
     Indication: POSTOPERATIVE WOUND INFECTION
     Dosage: UNK
     Route: 042
     Dates: start: 20170629, end: 20170705
  4. CEFTRIAXONA                        /00672201/ [Suspect]
     Active Substance: CEFTRIAXONE
     Indication: POSTOPERATIVE WOUND INFECTION
     Dosage: UNK
     Route: 065
     Dates: start: 20170621, end: 20170626
  5. TRIMETOPRIM + SULFAMETOXAZOL [Suspect]
     Active Substance: SULFAMETHOXAZOLE\TRIMETHOPRIM
     Indication: POSTOPERATIVE WOUND INFECTION
     Dosage: 800/160MG
     Route: 065
     Dates: start: 20170605, end: 20170724

REACTIONS (1)
  - Acute generalised exanthematous pustulosis [Recovered/Resolved]

NARRATIVE: CASE EVENT DATE: 20170725
